FAERS Safety Report 5813475-8 (Version None)
Quarter: 2008Q3

REPORT INFORMATION
  Report Type: 
  Country: None (occurrence: None)
  Receive Date: 20080716
  Receipt Date: 20080716
  Transmission Date: 20090109
  Serious: Yes (Life-Threatening, Hospitalization)
  Sender: FDA-Public Use
  Company Number: None

PATIENT
  Age: 77 Year
  Sex: Male
  Weight: 71 kg

DRUGS (1)
  1. ENOXAPARIN SODIUM [Suspect]
     Indication: DEEP VEIN THROMBOSIS
     Dosage: 70 MG BID SQ
     Route: 058
     Dates: start: 20080417, end: 20080427

REACTIONS (6)
  - ANAEMIA [None]
  - HAEMATOCHEZIA [None]
  - HAEMORRHAGE [None]
  - HYPOTENSION [None]
  - MELAENA [None]
  - TACHYCARDIA [None]
